FAERS Safety Report 4983771-5 (Version None)
Quarter: 2006Q1

REPORT INFORMATION
  Report Type: 
  Country: None (occurrence: None)
  Receive Date: 20060301
  Receipt Date: 20051226
  Transmission Date: 20060701
  Serious: No
  Sender: FDA-Public Use
  Company Number: S05-USA-05364-01

PATIENT
  Age: 81 Year
  Sex: Female

DRUGS (6)
  1. NAMENDA [Suspect]
     Indication: DEMENTIA
     Dosage: 15 MG QD PO
     Route: 048
     Dates: start: 20051206, end: 20051211
  2. NAMENDA [Suspect]
     Indication: DEMENTIA
     Dosage: 5 MG QD PO
     Route: 048
     Dates: start: 20051122, end: 20051128
  3. NAMENDA [Suspect]
     Indication: DEMENTIA
     Dosage: 5 MG BID PO
     Route: 048
     Dates: start: 20051129, end: 20051205
  4. NAMENDA [Suspect]
     Indication: DEMENTIA
     Dosage: 10 MG QD PO
     Route: 048
     Dates: start: 20051212
  5. FOSAMAX [Concomitant]
  6. ZOLOFT [Concomitant]

REACTIONS (6)
  - BRONCHITIS [None]
  - CONSTIPATION [None]
  - DYSPEPSIA [None]
  - FEELING ABNORMAL [None]
  - HEADACHE [None]
  - SINUSITIS [None]
